FAERS Safety Report 24772675 (Version 1)
Quarter: 2024Q4

REPORT INFORMATION
  Report Type: Spontaneous
  Country: US (occurrence: US)
  Receive Date: 20241225
  Receipt Date: 20241225
  Transmission Date: 20250115
  Serious: No
  Sender: BRISTOL-MYERS SQUIBB COMPANY
  Company Number: US-EXELIXIS-EXL-2024-003400

PATIENT
  Age: 56 Year
  Sex: Male
  Weight: 102.4 kg

DRUGS (5)
  1. OPDIVO [Suspect]
     Active Substance: NIVOLUMAB
     Indication: Product used for unknown indication
  2. CABOMETYX [Suspect]
     Active Substance: CABOZANTINIB S-MALATE
     Indication: Renal cancer
     Dosage: 20 MG, QD
     Route: 048
     Dates: start: 202310
  3. LENVIMA [Concomitant]
     Active Substance: LENVATINIB
     Indication: Product used for unknown indication
  4. LISINOPRIL [Concomitant]
     Active Substance: LISINOPRIL
     Indication: Product used for unknown indication
  5. NIFEDIPINE [Concomitant]
     Active Substance: NIFEDIPINE
     Indication: Product used for unknown indication

REACTIONS (3)
  - Sensitive skin [Unknown]
  - Blood pressure systolic increased [Unknown]
  - Rash macular [Unknown]
